FAERS Safety Report 13302801 (Version 1)
Quarter: 2017Q1

REPORT INFORMATION
  Report Type: Spontaneous
  Country: US (occurrence: US)
  Receive Date: 20170307
  Receipt Date: 20170307
  Transmission Date: 20170428
  Serious: No
  Sender: FDA-Public Use
  Company Number: US-PFIZER INC-2017089614

PATIENT
  Age: 68 Year
  Sex: Female

DRUGS (4)
  1. IBUPROFEN. [Suspect]
     Active Substance: IBUPROFEN
     Indication: LIMB INJURY
  2. IBUPROFEN. [Suspect]
     Active Substance: IBUPROFEN
     Indication: FALL
     Dosage: 2400 MG, DAILY (400MG, 6 TIMES A DAY)
     Dates: start: 201610, end: 201612
  3. IBUPROFEN. [Suspect]
     Active Substance: IBUPROFEN
     Indication: NECK INJURY
  4. XELJANZ XR [Suspect]
     Active Substance: TOFACITINIB CITRATE
     Indication: RHEUMATOID ARTHRITIS
     Dosage: 11 MG, 1X/DAY (IN THE MORNING)
     Route: 048
     Dates: start: 2015

REACTIONS (5)
  - Fall [Unknown]
  - Limb injury [Unknown]
  - Glomerular filtration rate decreased [Unknown]
  - Therapeutic response unexpected [Unknown]
  - Neck injury [Unknown]
